FAERS Safety Report 9893182 (Version 1)
Quarter: 2014Q1

REPORT INFORMATION
  Report Type: Spontaneous
  Country: FR (occurrence: FR)
  Receive Date: 20140213
  Receipt Date: 20140213
  Transmission Date: 20141002
  Serious: Yes (Hospitalization)
  Sender: FDA-Public Use
  Company Number: FR-ASTRAZENECA-2014SE08717

PATIENT
  Age: 32765 Day
  Sex: Female

DRUGS (4)
  1. ARIMIDEX [Suspect]
     Indication: BREAST CANCER
     Route: 048
     Dates: start: 201006, end: 20131220
  2. ARICEPT [Concomitant]
     Route: 048
  3. LERCAN [Concomitant]
     Route: 048
  4. STILNOX [Concomitant]
     Route: 048

REACTIONS (1)
  - Vascular purpura [Recovering/Resolving]
